FAERS Safety Report 13400162 (Version 1)
Quarter: 2017Q2

REPORT INFORMATION
  Report Type: Spontaneous
  Country: US (occurrence: US)
  Receive Date: 20170404
  Receipt Date: 20170404
  Transmission Date: 20170830
  Serious: No
  Sender: FDA-Public Use
  Company Number: US-PFIZER INC-2017132905

PATIENT
  Age: 63 Year
  Sex: Female
  Weight: 74.84 kg

DRUGS (14)
  1. IBRANCE [Suspect]
     Active Substance: PALBOCICLIB
     Indication: BREAST CANCER
     Dosage: 125 MG, CYCLIC, (DAILY FOR 3 WEEKS AND ONE WEEK OFF)
     Dates: start: 20170227
  2. SENNA [Concomitant]
     Active Substance: SENNA LEAF\SENNOSIDES\SENNOSIDES A AND B
     Dosage: UNK, AS NEEDED
  3. LORATADINE. [Concomitant]
     Active Substance: LORATADINE
     Indication: HYPERSENSITIVITY
     Dosage: 10 MG, 1X/DAY, (AT NIGHT)
  4. PRIDOCAINE [Concomitant]
     Dosage: UNK, AS NEEDED
  5. COUMADIN [Concomitant]
     Active Substance: WARFARIN SODIUM
     Dosage: UNK
  6. PRAVASTATIN. [Concomitant]
     Active Substance: PRAVASTATIN
     Indication: BLOOD CHOLESTEROL
     Dosage: 40 MG, 1X/DAY, (ONCE AT NIGHT)
  7. FASLODEX [Concomitant]
     Active Substance: FULVESTRANT
     Dosage: UNK, MONTHLY
     Dates: start: 20161031
  8. WARFARIN [Concomitant]
     Active Substance: WARFARIN
     Dosage: 5 MG, UNK, (5 MG ON MONDAY, WEDNESDAY AND FRIDAY)
  9. LIDOCAINE. [Concomitant]
     Active Substance: LIDOCAINE
     Dosage: UNK
  10. PROBIOTICS [Concomitant]
     Active Substance: PROBIOTICS NOS
     Dosage: UNK, (SHE HAS BEEN TAKING THEM FOR THE PAST SEVERAL MONTHS AND THEY HELP)
  11. OMEPRAZOLE. [Concomitant]
     Active Substance: OMEPRAZOLE
     Indication: GASTROOESOPHAGEAL REFLUX DISEASE
     Dosage: 20 MG, 1X/DAY, (AT NIGHT)
  12. ACETAMINOPHEN. [Concomitant]
     Active Substance: ACETAMINOPHEN
     Dosage: 500 MG, AS NEEDED, (ONE TO TWO TABLETS AS NEEDED)
  13. DOCUSATE [Concomitant]
     Active Substance: DOCUSATE
     Dosage: 100 MG, UNK
  14. WARFARIN [Concomitant]
     Active Substance: WARFARIN
     Dosage: 2.5 MG, (2.5 MG ON TUESDAY, THURSDAY, SATURDAY AND SUNDAY)

REACTIONS (6)
  - Red blood cell count decreased [Recovered/Resolved]
  - Vision blurred [Unknown]
  - Condition aggravated [Unknown]
  - White blood cell count decreased [Recovering/Resolving]
  - Platelet count decreased [Recovered/Resolved]
  - Body height decreased [Unknown]

NARRATIVE: CASE EVENT DATE: 20170227
